FAERS Safety Report 7043331-1 (Version None)
Quarter: 2010Q4

REPORT INFORMATION
  Report Type: 
  Country: None (occurrence: None)
  Receive Date: 20101013
  Receipt Date: 20100809
  Transmission Date: 20110411
  Serious: No
  Sender: FDA-Public Use
  Company Number: US-ASTRAZENECA-2009SE18314

PATIENT
  Age: 843 Month
  Sex: Female
  Weight: 52.2 kg

DRUGS (11)
  1. SYMBICORT [Suspect]
     Indication: ASTHMA
     Dosage: 360 MCG 4 PUFFS
     Route: 055
     Dates: start: 20090901
  2. SYMBICORT [Suspect]
     Dosage: 620 MCG, TOTAL
     Route: 055
     Dates: start: 20090101
  3. RHINOCORT [Suspect]
     Indication: SINUSITIS
     Route: 045
     Dates: start: 20100701
  4. ANXIETY MEDICATION [Concomitant]
  5. THYROID MEDICATION [Concomitant]
  6. MULTI-VITAMIN [Concomitant]
  7. ALPRAZOLAM [Concomitant]
     Indication: ANXIETY
  8. CALCIUM [Concomitant]
  9. HYDROXYCHLOROQUINE [Concomitant]
     Indication: SYSTEMIC LUPUS ERYTHEMATOSUS
  10. LEVOTHYROXINE [Concomitant]
     Indication: THYROID DISORDER
  11. LYRICA [Concomitant]

REACTIONS (8)
  - AGEUSIA [None]
  - BACK PAIN [None]
  - BONE PAIN [None]
  - BREAST CYST [None]
  - DIZZINESS [None]
  - DYSPHONIA [None]
  - SWELLING FACE [None]
  - WEIGHT DECREASED [None]
